FAERS Safety Report 14089580 (Version 1)
Quarter: 2017Q4

REPORT INFORMATION
  Report Type: Spontaneous
  Country: US (occurrence: US)
  Receive Date: 20171014
  Receipt Date: 20171014
  Transmission Date: 20180321
  Serious: No
  Sender: FDA-Public Use
  Company Number: US-SA-2017SA163527

PATIENT
  Age: 51 Year
  Sex: Female

DRUGS (10)
  1. MELOXICAM. [Concomitant]
     Active Substance: MELOXICAM
  2. NEURONTIN [Concomitant]
     Active Substance: GABAPENTIN
  3. PREDNISOLONE. [Concomitant]
     Active Substance: PREDNISOLONE
  4. ATORVASTATIN [Concomitant]
     Active Substance: ATORVASTATIN
  5. AUBAGIO [Suspect]
     Active Substance: TERIFLUNOMIDE
     Indication: MULTIPLE SCLEROSIS
     Route: 048
     Dates: start: 201708
  6. HYDROCHLOROTHIAZIDE. [Concomitant]
     Active Substance: HYDROCHLOROTHIAZIDE
  7. BENADRYL [Concomitant]
     Active Substance: DIPHENHYDRAMINE HYDROCHLORIDE
  8. LISINOPRIL. [Concomitant]
     Active Substance: LISINOPRIL
  9. IBUPROFEN. [Concomitant]
     Active Substance: IBUPROFEN
  10. OMEGA 3 [Concomitant]
     Active Substance: OMEGA-3 FATTY ACIDS

REACTIONS (6)
  - Blood potassium abnormal [Unknown]
  - Depressed mood [Unknown]
  - Decreased interest [Unknown]
  - Anaemia [Unknown]
  - Insomnia [Unknown]
  - Abnormal dreams [Unknown]
